FAERS Safety Report 19430017 (Version 2)
Quarter: 2021Q3

REPORT INFORMATION
  Report Type: Spontaneous
  Country: CA (occurrence: CA)
  Receive Date: 20210617
  Receipt Date: 20210703
  Transmission Date: 20211014
  Serious: Yes (Other)
  Sender: FDA-Public Use
  Company Number: CA-ROCHE-2844677

PATIENT
  Age: 44 Year
  Sex: Female
  Weight: 63 kg

DRUGS (172)
  1. BACTRIM [Suspect]
     Active Substance: SULFAMETHOXAZOLE\TRIMETHOPRIM
     Indication: PRODUCT USED FOR UNKNOWN INDICATION
     Route: 065
  2. NAPROXEN. [Suspect]
     Active Substance: NAPROXEN
     Indication: PRODUCT USED FOR UNKNOWN INDICATION
     Route: 048
  3. NAPROXEN. [Suspect]
     Active Substance: NAPROXEN
     Route: 065
  4. NAPROXEN. [Suspect]
     Active Substance: NAPROXEN
     Route: 065
  5. NAPROXEN. [Suspect]
     Active Substance: NAPROXEN
     Route: 065
  6. NAPROXEN. [Suspect]
     Active Substance: NAPROXEN
     Route: 065
  7. NAPROXEN. [Suspect]
     Active Substance: NAPROXEN
     Route: 065
  8. ACETAMINOPHEN. [Suspect]
     Active Substance: ACETAMINOPHEN
     Route: 065
  9. HYDROXYCHLOROQUINE [Suspect]
     Active Substance: HYDROXYCHLOROQUINE
     Indication: PRODUCT USED FOR UNKNOWN INDICATION
     Route: 065
  10. LYRICA [Suspect]
     Active Substance: PREGABALIN
     Route: 048
  11. PREDNISONE. [Suspect]
     Active Substance: PREDNISONE
     Route: 048
  12. PREDNISONE. [Suspect]
     Active Substance: PREDNISONE
     Route: 048
  13. RANITIDINE HYDROCHLORIDE. [Suspect]
     Active Substance: RANITIDINE HYDROCHLORIDE
     Route: 048
  14. RATIO?OXYCOCET [Suspect]
     Active Substance: ACETAMINOPHEN\OXYCODONE HYDROCHLORIDE
     Indication: PRODUCT USED FOR UNKNOWN INDICATION
     Route: 065
  15. RATIO?OXYCOCET [Suspect]
     Active Substance: ACETAMINOPHEN\OXYCODONE HYDROCHLORIDE
     Route: 065
  16. RATIO?OXYCOCET [Suspect]
     Active Substance: ACETAMINOPHEN\OXYCODONE HYDROCHLORIDE
     Route: 065
  17. RATIO?OXYCOCET [Suspect]
     Active Substance: ACETAMINOPHEN\OXYCODONE HYDROCHLORIDE
     Route: 065
  18. REMICADE [Suspect]
     Active Substance: INFLIXIMAB
     Indication: PRODUCT USED FOR UNKNOWN INDICATION
     Route: 042
  19. SEPTRA [Suspect]
     Active Substance: SULFAMETHOXAZOLE\TRIMETHOPRIM
     Route: 065
  20. TRIMETHOPRIM. [Suspect]
     Active Substance: TRIMETHOPRIM
     Indication: PRODUCT USED FOR UNKNOWN INDICATION
     Route: 065
  21. AMITRIPTYLINE HYDROCHLORIDE. [Suspect]
     Active Substance: AMITRIPTYLINE HYDROCHLORIDE
     Indication: PRODUCT USED FOR UNKNOWN INDICATION
     Route: 048
  22. APO?NAPROXEN [Suspect]
     Active Substance: NAPROXEN
     Route: 048
  23. SULFAMETHOXAZOLE/TRIMETHOPRIM [Suspect]
     Active Substance: SULFAMETHOXAZOLE\TRIMETHOPRIM
     Indication: PRODUCT USED FOR UNKNOWN INDICATION
     Route: 065
  24. RITUXIMAB. [Suspect]
     Active Substance: RITUXIMAB
     Indication: PRODUCT USED FOR UNKNOWN INDICATION
     Route: 065
  25. NAPROXEN. [Suspect]
     Active Substance: NAPROXEN
     Indication: PRODUCT USED FOR UNKNOWN INDICATION
     Route: 065
  26. NAPROXEN. [Suspect]
     Active Substance: NAPROXEN
     Route: 065
  27. AMITRIPTYLINE [Suspect]
     Active Substance: AMITRIPTYLINE
     Route: 048
  28. ACETAMINOPHEN. [Suspect]
     Active Substance: ACETAMINOPHEN
     Indication: PRODUCT USED FOR UNKNOWN INDICATION
     Route: 065
  29. AZATHIOPRINE. [Suspect]
     Active Substance: AZATHIOPRINE
     Indication: PRODUCT USED FOR UNKNOWN INDICATION
     Route: 065
  30. ENBREL [Suspect]
     Active Substance: ETANERCEPT
     Indication: RHEUMATOID ARTHRITIS
     Route: 058
  31. ALENDRONATE SODIUM. [Suspect]
     Active Substance: ALENDRONATE SODIUM
     Indication: PRODUCT USED FOR UNKNOWN INDICATION
     Route: 065
  32. MELOXICAM. [Suspect]
     Active Substance: MELOXICAM
     Indication: PRODUCT USED FOR UNKNOWN INDICATION
     Route: 065
  33. METHOTREXATE. [Suspect]
     Active Substance: METHOTREXATE
     Route: 058
  34. PANTOPRAZOLE [Suspect]
     Active Substance: PANTOPRAZOLE
     Indication: PRODUCT USED FOR UNKNOWN INDICATION
     Route: 048
  35. PREDNISONE. [Suspect]
     Active Substance: PREDNISONE
     Route: 048
  36. PREDNISONE. [Suspect]
     Active Substance: PREDNISONE
     Route: 048
  37. XELJANZ [Suspect]
     Active Substance: TOFACITINIB CITRATE
     Route: 048
  38. APO?MELOXICAM [Suspect]
     Active Substance: MELOXICAM
     Indication: RHEUMATOID ARTHRITIS
     Route: 065
  39. DEXILANT [Concomitant]
     Active Substance: DEXLANSOPRAZOLE
  40. ELTROXIN [Concomitant]
     Active Substance: LEVOTHYROXINE
     Route: 065
  41. ACETAMINOPHEN;OXYCODONE HYDROCHLORIDE [Concomitant]
     Active Substance: ACETAMINOPHEN\OXYCODONE HYDROCHLORIDE
     Route: 065
  42. ORENCIA [Concomitant]
     Active Substance: ABATACEPT
     Route: 058
  43. NAPROXEN. [Suspect]
     Active Substance: NAPROXEN
     Route: 065
  44. NAPROXEN. [Suspect]
     Active Substance: NAPROXEN
     Route: 065
  45. NAPROXEN. [Suspect]
     Active Substance: NAPROXEN
     Route: 048
  46. ESOMEPRAZOLE MAGNESIUM TRIHYDRATE [Suspect]
     Active Substance: ESOMEPRAZOLE MAGNESIUM
     Indication: PRODUCT USED FOR UNKNOWN INDICATION
     Route: 048
  47. ESOMEPRAZOLE MAGNESIUM TRIHYDRATE [Suspect]
     Active Substance: ESOMEPRAZOLE MAGNESIUM
     Route: 065
  48. ESOMEPRAZOLE MAGNESIUM TRIHYDRATE [Suspect]
     Active Substance: ESOMEPRAZOLE MAGNESIUM
     Route: 065
  49. HYDROXYCHLOROQUINE SULFATE. [Suspect]
     Active Substance: HYDROXYCHLOROQUINE SULFATE
     Indication: PRODUCT USED FOR UNKNOWN INDICATION
     Route: 065
  50. HYDROXYCHLOROQUINE SULFATE. [Suspect]
     Active Substance: HYDROXYCHLOROQUINE SULFATE
     Route: 065
  51. HYDROXYCHLOROQUINE SULFATE. [Suspect]
     Active Substance: HYDROXYCHLOROQUINE SULFATE
     Route: 048
  52. IMURAN [Suspect]
     Active Substance: AZATHIOPRINE
     Indication: PRODUCT USED FOR UNKNOWN INDICATION
     Route: 065
  53. LYRICA [Suspect]
     Active Substance: PREGABALIN
     Indication: RHEUMATOID ARTHRITIS
     Route: 048
  54. METHOTREXATE. [Suspect]
     Active Substance: METHOTREXATE
     Indication: RHEUMATOID ARTHRITIS
     Route: 058
  55. METHOTREXATE. [Suspect]
     Active Substance: METHOTREXATE
     Route: 048
  56. PANTOLOC [Suspect]
     Active Substance: PANTOPRAZOLE SODIUM
     Indication: PRODUCT USED FOR UNKNOWN INDICATION
     Route: 048
  57. PANTOLOC [Suspect]
     Active Substance: PANTOPRAZOLE SODIUM
     Route: 048
  58. PANTOLOC [Suspect]
     Active Substance: PANTOPRAZOLE SODIUM
     Route: 065
  59. PREDNISONE. [Suspect]
     Active Substance: PREDNISONE
     Indication: RHEUMATOID ARTHRITIS
     Route: 048
  60. PREDNISONE. [Suspect]
     Active Substance: PREDNISONE
     Route: 048
  61. PREDNISONE. [Suspect]
     Active Substance: PREDNISONE
     Route: 048
  62. RANITIDINE. [Suspect]
     Active Substance: RANITIDINE
     Indication: PRODUCT USED FOR UNKNOWN INDICATION
     Route: 048
  63. SULFASALAZINE. [Suspect]
     Active Substance: SULFASALAZINE
     Route: 048
  64. SULFASALAZINE. [Suspect]
     Active Substance: SULFASALAZINE
     Route: 048
  65. XELJANZ [Suspect]
     Active Substance: TOFACITINIB CITRATE
     Route: 048
  66. XELJANZ [Suspect]
     Active Substance: TOFACITINIB CITRATE
     Route: 048
  67. AMITRIPTYLINE PAMOATE [Suspect]
     Active Substance: AMITRIPTYLINE PAMOATE
     Indication: PRODUCT USED FOR UNKNOWN INDICATION
     Route: 048
  68. NAPROXEN SODIUM. [Suspect]
     Active Substance: NAPROXEN SODIUM
     Route: 048
  69. NAPROXEN SODIUM. [Suspect]
     Active Substance: NAPROXEN SODIUM
     Route: 048
  70. NAPROXEN. [Suspect]
     Active Substance: NAPROXEN
     Route: 065
  71. AZATHIOPRINE. [Suspect]
     Active Substance: AZATHIOPRINE
     Route: 065
  72. CIMZIA [Suspect]
     Active Substance: CERTOLIZUMAB PEGOL
     Route: 065
  73. ENBREL [Suspect]
     Active Substance: ETANERCEPT
     Route: 058
  74. ESOMEPRAZOLE MAGNESIUM TRIHYDRATE [Suspect]
     Active Substance: ESOMEPRAZOLE MAGNESIUM
     Route: 048
  75. HYDROXYCHLOROQUINE SULFATE. [Suspect]
     Active Substance: HYDROXYCHLOROQUINE SULFATE
     Route: 065
  76. LEFLUNOMIDE. [Suspect]
     Active Substance: LEFLUNOMIDE
     Indication: PRODUCT USED FOR UNKNOWN INDICATION
     Route: 065
  77. METHOTREXATE. [Suspect]
     Active Substance: METHOTREXATE
     Route: 058
  78. MOBICOX [Suspect]
     Active Substance: MELOXICAM
     Route: 065
  79. PANTOLOC [Suspect]
     Active Substance: PANTOPRAZOLE SODIUM
     Route: 065
  80. PANTOLOC [Suspect]
     Active Substance: PANTOPRAZOLE SODIUM
     Route: 048
  81. PREDNISONE. [Suspect]
     Active Substance: PREDNISONE
     Route: 048
  82. PREGABALIN. [Suspect]
     Active Substance: PREGABALIN
     Route: 048
  83. XELJANZ [Suspect]
     Active Substance: TOFACITINIB CITRATE
     Indication: RHEUMATOID ARTHRITIS
     Route: 048
  84. XELJANZ [Suspect]
     Active Substance: TOFACITINIB CITRATE
     Route: 048
  85. APO?NAPROXEN [Suspect]
     Active Substance: NAPROXEN
     Route: 048
  86. APO?PREDNISONE [Suspect]
     Active Substance: PREDNISONE
     Indication: RHEUMATOID ARTHRITIS
     Route: 065
  87. NAPROXEN SODIUM. [Suspect]
     Active Substance: NAPROXEN SODIUM
     Indication: PRODUCT USED FOR UNKNOWN INDICATION
     Route: 048
  88. CELEBREX [Concomitant]
     Active Substance: CELECOXIB
     Route: 065
  89. ACETAMINOPHEN;OXYCODONE HYDROCHLORIDE [Concomitant]
     Active Substance: ACETAMINOPHEN\OXYCODONE HYDROCHLORIDE
     Route: 065
  90. ACETAMINOPHEN;OXYCODONE HYDROCHLORIDE [Concomitant]
     Active Substance: ACETAMINOPHEN\OXYCODONE HYDROCHLORIDE
     Route: 065
  91. FOLIC ACID. [Concomitant]
     Active Substance: FOLIC ACID
     Route: 065
  92. NAPROXEN. [Suspect]
     Active Substance: NAPROXEN
     Route: 048
  93. NAPROXEN. [Suspect]
     Active Substance: NAPROXEN
     Route: 065
  94. ENBREL [Suspect]
     Active Substance: ETANERCEPT
     Route: 058
  95. ALENDRONIC ACID [Suspect]
     Active Substance: ALENDRONIC ACID
     Indication: PRODUCT USED FOR UNKNOWN INDICATION
     Route: 048
  96. HUMIRA [Suspect]
     Active Substance: ADALIMUMAB
     Indication: RHEUMATOID ARTHRITIS
  97. METHOTREXATE. [Suspect]
     Active Substance: METHOTREXATE
     Route: 058
  98. MOBICOX [Suspect]
     Active Substance: MELOXICAM
     Indication: PRODUCT USED FOR UNKNOWN INDICATION
     Route: 065
  99. PREDNISONE. [Suspect]
     Active Substance: PREDNISONE
     Route: 048
  100. RANITIDINE HYDROCHLORIDE. [Suspect]
     Active Substance: RANITIDINE HYDROCHLORIDE
     Route: 048
  101. RANITIDINE HYDROCHLORIDE. [Suspect]
     Active Substance: RANITIDINE HYDROCHLORIDE
     Route: 048
  102. SULFASALAZINE. [Suspect]
     Active Substance: SULFASALAZINE
     Indication: RHEUMATOID ARTHRITIS
     Route: 048
  103. XELJANZ [Suspect]
     Active Substance: TOFACITINIB CITRATE
     Route: 048
  104. APO?NAPROXEN [Suspect]
     Active Substance: NAPROXEN
     Indication: PRODUCT USED FOR UNKNOWN INDICATION
     Route: 048
  105. APO?NAPROXEN [Suspect]
     Active Substance: NAPROXEN
     Route: 048
  106. PLAQUENIL [Concomitant]
     Active Substance: HYDROXYCHLOROQUINE SULFATE
     Route: 065
  107. NAPROXEN. [Suspect]
     Active Substance: NAPROXEN
     Route: 048
  108. AMITRIPTYLINE [Suspect]
     Active Substance: AMITRIPTYLINE
     Indication: PRODUCT USED FOR UNKNOWN INDICATION
     Route: 048
  109. ADALIMUMAB [Suspect]
     Active Substance: ADALIMUMAB
     Indication: PRODUCT USED FOR UNKNOWN INDICATION
     Route: 058
  110. ADALIMUMAB [Suspect]
     Active Substance: ADALIMUMAB
     Route: 058
  111. IMURAN [Suspect]
     Active Substance: AZATHIOPRINE
     Route: 065
  112. LYRICA [Suspect]
     Active Substance: PREGABALIN
     Route: 048
  113. PANTOLOC [Suspect]
     Active Substance: PANTOPRAZOLE SODIUM
     Route: 065
  114. PREDNISONE. [Suspect]
     Active Substance: PREDNISONE
     Route: 048
  115. PREDNISONE. [Suspect]
     Active Substance: PREDNISONE
     Route: 048
  116. PREGABALIN. [Suspect]
     Active Substance: PREGABALIN
     Indication: RHEUMATOID ARTHRITIS
     Route: 048
  117. PREGABALIN. [Suspect]
     Active Substance: PREGABALIN
     Route: 048
  118. RANITIDINE. [Suspect]
     Active Substance: RANITIDINE
     Route: 048
  119. SIMPONI [Suspect]
     Active Substance: GOLIMUMAB
     Indication: PRODUCT USED FOR UNKNOWN INDICATION
     Route: 058
  120. ACTEMRA [Suspect]
     Active Substance: TOCILIZUMAB
     Indication: RHEUMATOID ARTHRITIS
     Route: 058
  121. ORENCIA [Suspect]
     Active Substance: ABATACEPT
     Indication: RHEUMATOID ARTHRITIS
     Route: 058
  122. OXYCODONE HYDROCHLORIDE. [Suspect]
     Active Substance: OXYCODONE HYDROCHLORIDE
     Indication: PRODUCT USED FOR UNKNOWN INDICATION
     Route: 065
  123. METHYLPREDNISOLONE SODIUM SUCCINATE. [Suspect]
     Active Substance: METHYLPREDNISOLONE SODIUM SUCCINATE
     Indication: RHEUMATOID ARTHRITIS
     Route: 014
  124. CANNABIS SATIVA [Concomitant]
     Active Substance: CANNABIS SATIVA FLOWERING TOP
     Route: 065
  125. PLAQUENIL [Concomitant]
     Active Substance: HYDROXYCHLOROQUINE SULFATE
     Route: 065
  126. NAPROXEN. [Suspect]
     Active Substance: NAPROXEN
     Route: 048
  127. ALLOPURINOL. [Suspect]
     Active Substance: ALLOPURINOL
     Indication: PRODUCT USED FOR UNKNOWN INDICATION
     Route: 048
  128. AZATHIOPRINE. [Suspect]
     Active Substance: AZATHIOPRINE
     Route: 048
  129. CIMZIA [Suspect]
     Active Substance: CERTOLIZUMAB PEGOL
     Indication: PRODUCT USED FOR UNKNOWN INDICATION
     Route: 065
  130. ENBREL [Suspect]
     Active Substance: ETANERCEPT
     Route: 058
  131. ENBREL [Suspect]
     Active Substance: ETANERCEPT
     Route: 058
  132. AMOXICILLIN. [Suspect]
     Active Substance: AMOXICILLIN
     Indication: PRODUCT USED FOR UNKNOWN INDICATION
     Route: 065
  133. FOSAMAX [Suspect]
     Active Substance: ALENDRONATE SODIUM
     Indication: PRODUCT USED FOR UNKNOWN INDICATION
     Route: 065
  134. HYDROXYCHLOROQUINE SULFATE. [Suspect]
     Active Substance: HYDROXYCHLOROQUINE SULFATE
     Route: 065
  135. HYDROXYCHLOROQUINE SULFATE. [Suspect]
     Active Substance: HYDROXYCHLOROQUINE SULFATE
     Route: 065
  136. LEFLUNOMIDE. [Suspect]
     Active Substance: LEFLUNOMIDE
     Route: 048
  137. METHOTREXATE. [Suspect]
     Active Substance: METHOTREXATE
     Route: 058
  138. METHYLPREDNISOLONE ACETATE. [Suspect]
     Active Substance: METHYLPREDNISOLONE ACETATE
     Indication: RHEUMATOID ARTHRITIS
     Route: 014
  139. PANTOLOC [Suspect]
     Active Substance: PANTOPRAZOLE SODIUM
     Route: 065
  140. RANITIDINE HYDROCHLORIDE. [Suspect]
     Active Substance: RANITIDINE HYDROCHLORIDE
     Route: 048
  141. RATIO?OXYCOCET [Suspect]
     Active Substance: ACETAMINOPHEN\OXYCODONE HYDROCHLORIDE
     Route: 065
  142. XELJANZ [Suspect]
     Active Substance: TOFACITINIB CITRATE
     Dosage: 2.0 DOSAGE FORMS
     Route: 048
  143. APO?NAPROXEN [Suspect]
     Active Substance: NAPROXEN
     Route: 048
  144. APO?NAPROXEN [Suspect]
     Active Substance: NAPROXEN
     Route: 048
  145. OXYCOCET [Suspect]
     Active Substance: ACETAMINOPHEN\OXYCODONE HYDROCHLORIDE
     Indication: PRODUCT USED FOR UNKNOWN INDICATION
     Route: 065
  146. CELEBREX [Concomitant]
     Active Substance: CELECOXIB
     Indication: PRODUCT USED FOR UNKNOWN INDICATION
     Route: 065
  147. ACTEMRA [Suspect]
     Active Substance: TOCILIZUMAB
     Indication: PRODUCT USED FOR UNKNOWN INDICATION
     Route: 065
  148. BACTRIM [Suspect]
     Active Substance: SULFAMETHOXAZOLE\TRIMETHOPRIM
     Route: 065
  149. NAPROXEN. [Suspect]
     Active Substance: NAPROXEN
     Route: 065
  150. ARAVA [Suspect]
     Active Substance: LEFLUNOMIDE
     Indication: PRODUCT USED FOR UNKNOWN INDICATION
     Route: 065
  151. ENBREL [Suspect]
     Active Substance: ETANERCEPT
     Route: 058
  152. ALENDRONATE SODIUM. [Suspect]
     Active Substance: ALENDRONATE SODIUM
     Route: 065
  153. ALENDRONATE SODIUM. [Suspect]
     Active Substance: ALENDRONATE SODIUM
     Route: 065
  154. GOLD [Suspect]
     Active Substance: GOLD
     Indication: PRODUCT USED FOR UNKNOWN INDICATION
     Route: 065
  155. HUMIRA [Suspect]
     Active Substance: ADALIMUMAB
     Indication: DRUG THERAPY
     Route: 058
  156. HYDROXYCHLOROQUINE SULFATE. [Suspect]
     Active Substance: HYDROXYCHLOROQUINE SULFATE
     Route: 065
  157. MOBICOX [Suspect]
     Active Substance: MELOXICAM
     Route: 065
  158. MOBICOX [Suspect]
     Active Substance: MELOXICAM
     Route: 065
  159. PREDNISONE. [Suspect]
     Active Substance: PREDNISONE
     Route: 048
  160. RANITIDINE HYDROCHLORIDE. [Suspect]
     Active Substance: RANITIDINE HYDROCHLORIDE
     Indication: PRODUCT USED FOR UNKNOWN INDICATION
     Route: 048
  161. SEPTRA [Suspect]
     Active Substance: SULFAMETHOXAZOLE\TRIMETHOPRIM
     Indication: PRODUCT USED FOR UNKNOWN INDICATION
     Route: 065
  162. XELJANZ [Suspect]
     Active Substance: TOFACITINIB CITRATE
     Route: 048
  163. XELJANZ [Suspect]
     Active Substance: TOFACITINIB CITRATE
     Route: 048
  164. XELJANZ [Suspect]
     Active Substance: TOFACITINIB CITRATE
     Route: 048
  165. XELJANZ [Suspect]
     Active Substance: TOFACITINIB CITRATE
     Dosage: 2.0 DOSAGE FORMS
     Route: 048
  166. APO?AMITRIPTYLINE [Suspect]
     Active Substance: AMITRIPTYLINE HYDROCHLORIDE
     Indication: PRODUCT USED FOR UNKNOWN INDICATION
     Route: 048
  167. DEPO?MEDROL [Suspect]
     Active Substance: METHYLPREDNISOLONE ACETATE
     Indication: RHEUMATOID ARTHRITIS
     Route: 014
  168. NAPROXEN SODIUM. [Suspect]
     Active Substance: NAPROXEN SODIUM
     Route: 048
  169. NAPROXEN SODIUM. [Suspect]
     Active Substance: NAPROXEN SODIUM
     Route: 048
  170. CELEBREX [Concomitant]
     Active Substance: CELECOXIB
     Route: 065
  171. CODEINE [Concomitant]
     Active Substance: CODEINE
     Route: 065
  172. ACETAMINOPHEN;OXYCODONE HYDROCHLORIDE [Concomitant]
     Active Substance: ACETAMINOPHEN\OXYCODONE HYDROCHLORIDE
     Route: 065

REACTIONS (80)
  - Back pain [Not Recovered/Not Resolved]
  - Cushingoid [Not Recovered/Not Resolved]
  - Dyspnoea [Not Recovered/Not Resolved]
  - Haemoglobin decreased [Not Recovered/Not Resolved]
  - Liver disorder [Not Recovered/Not Resolved]
  - Musculoskeletal stiffness [Not Recovered/Not Resolved]
  - Myalgia [Not Recovered/Not Resolved]
  - Pain in extremity [Not Recovered/Not Resolved]
  - Pneumonia [Not Recovered/Not Resolved]
  - Rash maculo-papular [Not Recovered/Not Resolved]
  - Synovial cyst [Not Recovered/Not Resolved]
  - Contraindicated product administered [Unknown]
  - Antinuclear antibody positive [Not Recovered/Not Resolved]
  - Bursitis [Not Recovered/Not Resolved]
  - Diarrhoea [Not Recovered/Not Resolved]
  - Eye irritation [Not Recovered/Not Resolved]
  - Fibromyalgia [Not Recovered/Not Resolved]
  - Infection [Not Recovered/Not Resolved]
  - Inflammation [Not Recovered/Not Resolved]
  - Musculoskeletal pain [Not Recovered/Not Resolved]
  - Neoplasm malignant [Not Recovered/Not Resolved]
  - Red blood cell count decreased [Not Recovered/Not Resolved]
  - Tenosynovitis [Not Recovered/Not Resolved]
  - Wheezing [Not Recovered/Not Resolved]
  - Atelectasis [Not Recovered/Not Resolved]
  - Dry eye [Not Recovered/Not Resolved]
  - Feeling abnormal [Not Recovered/Not Resolved]
  - Joint swelling [Not Recovered/Not Resolved]
  - Nodule [Not Recovered/Not Resolved]
  - Peripheral swelling [Not Recovered/Not Resolved]
  - Pruritus [Not Recovered/Not Resolved]
  - Arthralgia [Not Recovered/Not Resolved]
  - C-reactive protein increased [Not Recovered/Not Resolved]
  - Conjunctivitis [Not Recovered/Not Resolved]
  - Fatigue [Not Recovered/Not Resolved]
  - Feeling jittery [Not Recovered/Not Resolved]
  - Impaired work ability [Not Recovered/Not Resolved]
  - Rash pruritic [Not Recovered/Not Resolved]
  - Scleritis [Not Recovered/Not Resolved]
  - Tenderness [Not Recovered/Not Resolved]
  - Upper respiratory tract infection [Not Recovered/Not Resolved]
  - White blood cell count decreased [Not Recovered/Not Resolved]
  - Allergy to chemicals [Not Recovered/Not Resolved]
  - Crepitations [Not Recovered/Not Resolved]
  - Erythema [Not Recovered/Not Resolved]
  - Eye pain [Not Recovered/Not Resolved]
  - Nausea [Not Recovered/Not Resolved]
  - Drug ineffective [Unknown]
  - Treatment failure [Not Recovered/Not Resolved]
  - Bone density decreased [Not Recovered/Not Resolved]
  - Deformity [Not Recovered/Not Resolved]
  - Dry mouth [Not Recovered/Not Resolved]
  - Pain [Not Recovered/Not Resolved]
  - Rheumatoid nodule [Not Recovered/Not Resolved]
  - Swelling face [Not Recovered/Not Resolved]
  - Synovial fluid analysis [Not Recovered/Not Resolved]
  - Off label use [Unknown]
  - Abdominal pain [Not Recovered/Not Resolved]
  - Dizziness [Not Recovered/Not Resolved]
  - Hand deformity [Not Recovered/Not Resolved]
  - Joint range of motion decreased [Not Recovered/Not Resolved]
  - Ocular hyperaemia [Not Recovered/Not Resolved]
  - Pulmonary toxicity [Not Recovered/Not Resolved]
  - Rheumatoid arthritis [Not Recovered/Not Resolved]
  - Tenosynovitis stenosans [Not Recovered/Not Resolved]
  - Thrombosis [Not Recovered/Not Resolved]
  - Visual impairment [Not Recovered/Not Resolved]
  - Arthritis [Not Recovered/Not Resolved]
  - Drug intolerance [Not Recovered/Not Resolved]
  - Flank pain [Not Recovered/Not Resolved]
  - Interstitial lung disease [Not Recovered/Not Resolved]
  - Joint effusion [Not Recovered/Not Resolved]
  - Lung disorder [Not Recovered/Not Resolved]
  - Malaise [Not Recovered/Not Resolved]
  - Muscular weakness [Not Recovered/Not Resolved]
  - Photophobia [Not Recovered/Not Resolved]
  - Pleuritic pain [Not Recovered/Not Resolved]
  - Rash [Not Recovered/Not Resolved]
  - Skin ulcer [Not Recovered/Not Resolved]
  - Therapeutic product effect decreased [Not Recovered/Not Resolved]
